FAERS Safety Report 20323019 (Version 5)
Quarter: 2022Q2

REPORT INFORMATION
  Report Type: Spontaneous
  Country: IE (occurrence: IE)
  Receive Date: 20220111
  Receipt Date: 20220607
  Transmission Date: 20220721
  Serious: Yes (Other)
  Sender: FDA-Public Use
  Company Number: IE-BRISTOL-MYERS SQUIBB COMPANY-BMS-2021-143537

PATIENT
  Age: 87 Year
  Sex: Male

DRUGS (6)
  1. APIXABAN [Suspect]
     Active Substance: APIXABAN
     Indication: Cerebrovascular accident prophylaxis
     Dosage: UNK
  2. APIXABAN [Suspect]
     Active Substance: APIXABAN
     Dosage: UNK
  3. APIXABAN [Suspect]
     Active Substance: APIXABAN
     Dosage: UNK
  4. COMIRNATY [Suspect]
     Active Substance: TOZINAMERAN
     Indication: COVID-19 immunisation
     Dosage: DOSE 1, SINGLE, TOTAL
  5. COMIRNATY [Suspect]
     Active Substance: TOZINAMERAN
     Dosage: DOSE 2, SINGLE, TOTAL
  6. COMIRNATY [Suspect]
     Active Substance: TOZINAMERAN
     Dosage: DOSE 3 (BOOSTER), SINGLE, TOTAL

REACTIONS (4)
  - Cardiac failure congestive [Unknown]
  - COVID-19 [Unknown]
  - Lower respiratory tract infection [Unknown]
  - Drug ineffective [Unknown]

NARRATIVE: CASE EVENT DATE: 20211220
